FAERS Safety Report 9836987 (Version 1)
Quarter: 2013Q4

REPORT INFORMATION
  Report Type: Spontaneous
  Country: US (occurrence: None)
  Receive Date: 20131205
  Receipt Date: 20131205
  Transmission Date: 20140711
  Serious: Yes (Other)
  Sender: FDA-Public Use
  Company Number: 163-POMAL-13103418

PATIENT
  Age: 49 Year
  Sex: Female

DRUGS (1)
  1. POMALYST (POMALIDOMIDE) (4 MILLIGRAM, CAPSULES) [Suspect]
     Indication: PLASMA CELL MYELOMA
     Dosage: 1 IN 1 D
     Route: 048
     Dates: start: 20130713

REACTIONS (7)
  - Hypoaesthesia [None]
  - Somnolence [None]
  - Chest pain [None]
  - Pain in extremity [None]
  - Bone pain [None]
  - Nausea [None]
  - Dizziness [None]
